FAERS Safety Report 17388062 (Version 1)
Quarter: 2020Q1

REPORT INFORMATION
  Report Type: Spontaneous
  Country: US (occurrence: US)
  Receive Date: 20200207
  Receipt Date: 20200207
  Transmission Date: 20200409
  Serious: No
  Sender: FDA-Public Use
  Company Number: US-DRREDDYS-USA/USA/20/0119163

PATIENT

DRUGS (1)
  1. PHYTONADIONE INJECTABLE EMULSION [Suspect]
     Active Substance: PHYTONADIONE
     Indication: PRODUCT USED FOR UNKNOWN INDICATION
     Dates: start: 20200122

REACTIONS (1)
  - Skin laceration [Unknown]
